FAERS Safety Report 9164501 (Version 2)
Quarter: 2013Q4

REPORT INFORMATION
  Report Type: Spontaneous
  Country: GB (occurrence: None)
  Receive Date: 20130226
  Receipt Date: 20131106
  Transmission Date: 20140711
  Serious: Yes (Other)
  Sender: FDA-Public Use
  Company Number: AUR-APL-2013-01623

PATIENT
  Age: 18 Year
  Sex: Male

DRUGS (9)
  1. FLUOXETINE [Suspect]
     Indication: AGGRESSION
     Route: 048
     Dates: start: 20130123, end: 20130201
  2. CIRCADIN (MELATONIN) [Concomitant]
  3. CLOBAZAM (CLOBAZAM) [Concomitant]
  4. DESMOPRESSION (DESMOPRESSION) [Concomitant]
  5. LORATIDINE [Concomitant]
  6. MIDAZOLAM (MIDAZOLAM) [Concomitant]
  7. PIZOTIFEN (PIZOTIFEN) [Concomitant]
  8. SODIUM VALOPRATE (VALOPRATE SODIUM) [Concomitant]
  9. VENTOLIN (SALBUTAMOL) [Concomitant]

REACTIONS (4)
  - Priapism [None]
  - Epistaxis [None]
  - Agitation [None]
  - Aggression [None]
